FAERS Safety Report 13512234 (Version 1)
Quarter: 2017Q2

REPORT INFORMATION
  Report Type: Spontaneous
  Country: US (occurrence: US)
  Receive Date: 20170504
  Receipt Date: 20170504
  Transmission Date: 20170830
  Serious: Yes (Disabling)
  Sender: FDA-Public Use
  Company Number: None

PATIENT
  Age: 54 Year
  Sex: Female
  Weight: 99 kg

DRUGS (15)
  1. TRAXADONE [Concomitant]
  2. VENLAFAXINE [Concomitant]
     Active Substance: VENLAFAXINE HYDROCHLORIDE
  3. CURCUMIN [Concomitant]
     Active Substance: CURCUMIN
  4. TOPIRAMATE. [Concomitant]
     Active Substance: TOPIRAMATE
  5. GLAD SEED RAW ORGANIC MEAL [Concomitant]
  6. BUSPIRONE [Suspect]
     Active Substance: BUSPIRONE HYDROCHLORIDE
     Indication: ANXIETY
     Dosage: ?          QUANTITY:.5 TABLET(S);?TWICE A DAY ORAL
     Route: 048
     Dates: start: 20170428, end: 20170503
  7. ALLEGRA [Concomitant]
     Active Substance: FEXOFENADINE HYDROCHLORIDE
  8. TURMERIC [Concomitant]
     Active Substance: HERBALS\TURMERIC
  9. BUSPIRONE [Suspect]
     Active Substance: BUSPIRONE HYDROCHLORIDE
     Indication: DEPRESSION
     Dosage: ?          QUANTITY:.5 TABLET(S);?TWICE A DAY ORAL
     Route: 048
     Dates: start: 20170428, end: 20170503
  10. LEVOTHYROXINE. [Concomitant]
     Active Substance: LEVOTHYROXINE
  11. IMIPRAMINE [Concomitant]
     Active Substance: IMIPRAMINE
  12. ORGANIC SHAKE AND MEAL REPLACEMENT [Concomitant]
  13. ALPHA BASE VITAMIN PACK [Concomitant]
  14. GABITRIL [Concomitant]
     Active Substance: TIAGABINE HYDROCHLORIDE
  15. MONTELUKAST [Concomitant]
     Active Substance: MONTELUKAST SODIUM

REACTIONS (2)
  - Photosensitivity reaction [None]
  - Sunburn [None]

NARRATIVE: CASE EVENT DATE: 20170503
